FAERS Safety Report 14289279 (Version 2)
Quarter: 2018Q2

REPORT INFORMATION
  Report Type: Spontaneous
  Country: US (occurrence: US)
  Receive Date: 20171215
  Receipt Date: 20180511
  Transmission Date: 20180711
  Serious: No
  Sender: FDA-Public Use
  Company Number: US-PFIZER INC-2017534987

PATIENT
  Age: 44 Year
  Sex: Female

DRUGS (2)
  1. IBRANCE [Suspect]
     Active Substance: PALBOCICLIB
     Dosage: 100 MG, CYCLIC, (DAILY 21 DAYS)
     Route: 048
     Dates: start: 20171213
  2. IBRANCE [Suspect]
     Active Substance: PALBOCICLIB
     Indication: BREAST CANCER FEMALE
     Dosage: 100 MG, CYCLIC, (DAILY 21D ON 7D OFF)
     Route: 048
     Dates: start: 20171113, end: 2017

REACTIONS (2)
  - Sleep disorder [Unknown]
  - Nausea [Unknown]

NARRATIVE: CASE EVENT DATE: 20171213
